FAERS Safety Report 11244964 (Version 2)
Quarter: 2015Q3

REPORT INFORMATION
  Report Type: Spontaneous
  Country: US (occurrence: US)
  Receive Date: 20150707
  Receipt Date: 20150817
  Transmission Date: 20151125
  Serious: Yes (Death, Hospitalization)
  Sender: FDA-Public Use
  Company Number: US-JNJFOC-20150617997

PATIENT
  Age: 68 Year
  Sex: Male

DRUGS (13)
  1. IMBRUVICA [Suspect]
     Active Substance: IBRUTINIB
     Indication: CHRONIC LYMPHOCYTIC LEUKAEMIA
     Route: 048
     Dates: start: 201412, end: 201503
  2. BARACLUDE [Concomitant]
     Active Substance: ENTECAVIR
  3. IMBRUVICA [Suspect]
     Active Substance: IBRUTINIB
     Indication: CHRONIC LYMPHOCYTIC LEUKAEMIA
     Route: 048
     Dates: start: 20140711, end: 201412
  4. IMBRUVICA [Suspect]
     Active Substance: IBRUTINIB
     Indication: CHRONIC LYMPHOCYTIC LEUKAEMIA
     Route: 048
     Dates: start: 2015
  5. LAMISIL [Concomitant]
     Active Substance: TERBINAFINE HYDROCHLORIDE
  6. PRILOSEC [Concomitant]
     Active Substance: OMEPRAZOLE MAGNESIUM
  7. SIMVASTATIN. [Concomitant]
     Active Substance: SIMVASTATIN
  8. VALTREX [Concomitant]
     Active Substance: VALACYCLOVIR HYDROCHLORIDE
     Route: 065
  9. CHOP NOS [Concomitant]
     Indication: CHRONIC LYMPHOCYTIC LEUKAEMIA TRANSFORMATION
  10. AMBIEN [Concomitant]
     Active Substance: ZOLPIDEM TARTRATE
  11. IMBRUVICA [Suspect]
     Active Substance: IBRUTINIB
     Indication: CHRONIC LYMPHOCYTIC LEUKAEMIA
     Route: 048
     Dates: start: 201403, end: 20140711
  12. TRAMADOL. [Concomitant]
     Active Substance: TRAMADOL
  13. RAPAFLO [Concomitant]
     Active Substance: SILODOSIN

REACTIONS (6)
  - Septic shock [Fatal]
  - Bone marrow failure [Unknown]
  - Febrile neutropenia [Unknown]
  - Gastroenteritis [Unknown]
  - Chronic lymphocytic leukaemia transformation [Not Recovered/Not Resolved]
  - Pneumonia [Not Recovered/Not Resolved]

NARRATIVE: CASE EVENT DATE: 201407
